FAERS Safety Report 25345916 (Version 1)
Quarter: 2025Q2

REPORT INFORMATION
  Report Type: Report from Study
  Country: US (occurrence: US)
  Receive Date: 20250522
  Receipt Date: 20250522
  Transmission Date: 20250717
  Serious: Yes (Other)
  Sender: GILEAD
  Company Number: US-GILEAD-2025-0711410

PATIENT
  Age: 71 Year
  Sex: Female

DRUGS (1)
  1. AZTREONAM LYSINE [Suspect]
     Active Substance: AZTREONAM LYSINE
     Indication: Cystic fibrosis
     Dosage: 75MG: MIX 1 VIAL WITH 1 SALINE AMPULE AND ADD TO ALTERA DEVICE. INHALE THREE TIMES DAILY FOR 28 DAYS
     Route: 055
     Dates: start: 20220402

REACTIONS (4)
  - Cystic fibrosis [Unknown]
  - Lung disorder [Not Recovered/Not Resolved]
  - Loss of personal independence in daily activities [Not Recovered/Not Resolved]
  - Social problem [Not Recovered/Not Resolved]
